FAERS Safety Report 7546314-8 (Version None)
Quarter: 2011Q2

REPORT INFORMATION
  Report Type: 
  Country: None (occurrence: None)
  Receive Date: 20110614
  Receipt Date: 20110613
  Transmission Date: 20111010
  Serious: Yes (Other)
  Sender: FDA-Public Use
  Company Number: JP-PFIZER INC-2011128870

PATIENT
  Sex: Male

DRUGS (2)
  1. FAMOTIDINE [Suspect]
     Dosage: 20 MG, UNK
     Route: 048
  2. LIPITOR [Suspect]
     Dosage: 10 MG, UNK
     Route: 048

REACTIONS (2)
  - ANAEMIA [None]
  - HEPATIC FUNCTION ABNORMAL [None]
